FAERS Safety Report 12568119 (Version 1)
Quarter: 2016Q3

REPORT INFORMATION
  Report Type: Spontaneous
  Country: US (occurrence: US)
  Receive Date: 20160718
  Receipt Date: 20160718
  Transmission Date: 20161109
  Serious: No
  Sender: FDA-Public Use
  Company Number: US-ASTELLAS-2016US017597

PATIENT
  Age: 92 Year
  Sex: Female

DRUGS (2)
  1. MYRBETRIQ [Suspect]
     Active Substance: MIRABEGRON
     Indication: BLADDER DISORDER
     Dosage: 25 MG, UNKNOWN FREQ. FOR A WEEK
     Route: 065
     Dates: start: 20160302, end: 20160309
  2. MYRBETRIQ [Suspect]
     Active Substance: MIRABEGRON
     Indication: URETHRAL INTRINSIC SPHINCTER DEFICIENCY

REACTIONS (3)
  - Dizziness [Recovered/Resolved]
  - Visual impairment [Recovered/Resolved]
  - Off label use [Unknown]

NARRATIVE: CASE EVENT DATE: 201603
